FAERS Safety Report 4338138-X (Version None)
Quarter: 2004Q2

REPORT INFORMATION
  Report Type: 
  Country: None (occurrence: None)
  Receive Date: 20040407
  Receipt Date: 20040326
  Transmission Date: 20050107
  Serious: Yes (Hospitalization)
  Sender: FDA-Public Use
  Company Number: 2004206751FR

PATIENT
  Sex: Female

DRUGS (12)
  1. XANAX [Suspect]
     Indication: DEPRESSION
     Dosage: 0.5 MG, BID, ORAL
     Route: 048
  2. LORAZEPAM [Suspect]
     Indication: DEPRESSION
     Dosage: ORAL
     Route: 048
  3. TRANXENE [Suspect]
     Indication: DEPRESSION
     Dosage: 50 MG, BID, ORAL
     Route: 048
  4. ANAFRANIL [Suspect]
     Indication: DEPRESSION
     Dosage: 75 MG, BID, ORAL
     Route: 048
  5. KETOPROFEN [Concomitant]
  6. ACETAMINOPHEN [Concomitant]
  7. MYOLASTAN [Concomitant]
  8. MORPHINE [Concomitant]
  9. OMEPRAZOLE [Concomitant]
  10. DUPHALAC [Concomitant]
  11. FLUCONAZOLE [Concomitant]
  12. PRIMPERAN INJ [Concomitant]

REACTIONS (2)
  - DRUG EXPOSURE DURING PREGNANCY [None]
  - POLYHYDRAMNIOS [None]
